FAERS Safety Report 10047363 (Version 1)
Quarter: 2014Q1

REPORT INFORMATION
  Report Type: Spontaneous
  Country: GB (occurrence: None)
  Receive Date: 20140327
  Receipt Date: 20140327
  Transmission Date: 20141002
  Serious: Yes (Other)
  Sender: FDA-Public Use
  Company Number: AUR-APL-2014-03643

PATIENT
  Age: 71 Year
  Sex: Male
  Weight: 87 kg

DRUGS (21)
  1. AMOXICILLIN+CLAVULANIC ACID [Suspect]
     Indication: PRODUCT USED FOR UNKNOWN INDICATION
     Dates: start: 20140304
  2. ALLOPURINOL (ALLOPURINOL) [Concomitant]
  3. ASPIRIN (ACETYLSALICYLIC ACID) [Concomitant]
  4. CALCICHEW D3 (LEKOVIT CA) [Concomitant]
  5. CITALOPRAM (CITALOPRAM) [Concomitant]
  6. DIGOXIN (DIGOXIN) [Concomitant]
  7. DOXYCYCLINE (DOXYCYCLINE) [Concomitant]
  8. FERROUS FUMARATE (FERROUS FUMARATE) [Concomitant]
  9. FLUTICASONE (FLUTICASONE) [Concomitant]
  10. FUROSEMIDE (FUROSEMIDE) [Concomitant]
  11. GAVISCON ADVANCE (GAVISCON ADVANCE) [Concomitant]
  12. GLYCERYL TRINITRATE (GLYCERYL TRINITRATE) [Concomitant]
  13. IPRATROPIUM BROMIDE (IPRATROPIUM BROMIDE) [Concomitant]
  14. KAPAKE (PANADEINE CO) [Concomitant]
  15. LANSOPRAZOLE (LANSOPRAZOLE) [Concomitant]
  16. NEFOPAM (NEFOPAM) [Concomitant]
  17. NICORANDIL (NICORANDIL) [Concomitant]
  18. PREDNISOLONE (PREDNISOLONE) [Concomitant]
  19. SIMVASTATIN (SIMVASTATIN) [Concomitant]
  20. TILDIEM (DILTIAZEM HYDROCHLORIDE) [Concomitant]
  21. ZOLPIDEM (ZOLPIDEM) [Concomitant]

REACTIONS (2)
  - Rash [None]
  - Malaise [None]
